FAERS Safety Report 9219114 (Version 1)
Quarter: 2013Q1

REPORT INFORMATION
  Report Type: Spontaneous
  Country: US (occurrence: US)
  Receive Date: 20120830
  Receipt Date: 20120830
  Transmission Date: 20140127
  Serious: Yes (Other)
  Sender: FDA-Public Use
  Company Number: PHEH2012US005744

PATIENT
  Age: 85 Year
  Sex: Male
  Weight: 59.4 kg

DRUGS (11)
  1. SANDOSTATIN LAR DEPOT (OCTREOTIDE WITH POLY (D L-LACTIDE-CO-GLYCOLIDE )) [Suspect]
     Indication: DIARRHOEA
     Route: 030
     Dates: start: 20120209
  2. ASPIRIN ^BAYER^ (ACETYLSALICYLIC ACID) TABLET [Concomitant]
  3. BISOPROLOL W/HYDROCHLOROTHIAZIDE (BISOPROLOL, HYDROCHLOROTHIAZIDE) TABLET [Concomitant]
  4. VITAMIN D (ERGOCALCIFEROL) [Concomitant]
  5. CLONIDINE (CLONIDINE) [Concomitant]
  6. MAGNESIUM (MAGNESIUM) CAPSULE [Concomitant]
  7. MVA (VITAMINS NOS) [Concomitant]
  8. OXYBUTYNIN (OXYBUTYNIN) TABLET [Concomitant]
  9. PLAQUENIL (HYDROXYCHLOROQUINE SULFATE) TABLET [Concomitant]
  10. PREDNISONE (PREDNISONE) TABLET [Concomitant]
  11. PROCRIT [Concomitant]

REACTIONS (12)
  - Haemoglobin decreased [None]
  - Crepitations [None]
  - Diarrhoea [None]
  - Asthenia [None]
  - Fatigue [None]
  - Dizziness [None]
  - Dyspnoea [None]
  - Abdominal pain [None]
  - Drug ineffective [None]
  - Oedema peripheral [None]
  - Pollakiuria [None]
  - Dysuria [None]
